FAERS Safety Report 22630530 (Version 1)
Quarter: 2023Q2

REPORT INFORMATION
  Report Type: Spontaneous
  Country: US (occurrence: US)
  Receive Date: 20230622
  Receipt Date: 20230622
  Transmission Date: 20230721
  Serious: No
  Sender: FDA-Public Use
  Company Number: US-ABBVIE-5299358

PATIENT
  Sex: Female

DRUGS (1)
  1. LATISSE [Suspect]
     Active Substance: BIMATOPROST
     Indication: Product used for unknown indication
     Route: 065
     Dates: start: 202305

REACTIONS (7)
  - Erythema of eyelid [Unknown]
  - Eye pain [Unknown]
  - Erythema [Unknown]
  - Ocular hyperaemia [Unknown]
  - Emotional distress [Not Recovered/Not Resolved]
  - Eye irritation [Unknown]
  - Dry eye [Unknown]
